FAERS Safety Report 11558224 (Version 6)
Quarter: 2016Q4

REPORT INFORMATION
  Report Type: Report from Study
  Country: CA (occurrence: CA)
  Receive Date: 20150928
  Receipt Date: 20161212
  Transmission Date: 20170206
  Serious: Yes (Disabling, Other)
  Sender: FDA-Public Use
  Company Number: CA-ROCHE-1620990

PATIENT
  Age: 71 Year
  Sex: Female

DRUGS (14)
  1. LISINOPRIL. [Concomitant]
     Active Substance: LISINOPRIL
  2. SIMPONI [Concomitant]
     Active Substance: GOLIMUMAB
  3. DIPHENHYDRAMINE. [Concomitant]
     Active Substance: DIPHENHYDRAMINE
     Indication: PREMEDICATION
     Route: 048
     Dates: start: 20150730
  4. ADVAIR HFA [Concomitant]
     Active Substance: FLUTICASONE PROPIONATE\SALMETEROL XINAFOATE
  5. APO-SALVENT INHALER [Concomitant]
     Active Substance: ALBUTEROL
  6. RITUXAN [Suspect]
     Active Substance: RITUXIMAB
     Indication: RHEUMATOID ARTHRITIS
     Dosage: DATE OF LAST DOSE RECEIVED: 11/AUG/2015
     Route: 042
     Dates: start: 20150730
  7. METHOTREXATE. [Concomitant]
     Active Substance: METHOTREXATE
  8. METHYLPREDNISOLONE. [Concomitant]
     Active Substance: METHYLPREDNISOLONE
     Indication: PREMEDICATION
     Route: 042
     Dates: start: 20150730
  9. FOLIC ACID. [Concomitant]
     Active Substance: FOLIC ACID
  10. ACETAMINOPHEN. [Concomitant]
     Active Substance: ACETAMINOPHEN
     Indication: PREMEDICATION
     Route: 048
     Dates: start: 20150730
  11. ATROVENT INHALER [Concomitant]
  12. CALCIUM CARBONATE. [Concomitant]
     Active Substance: CALCIUM CARBONATE
  13. WARFARIN [Concomitant]
     Active Substance: WARFARIN
  14. APO-METOPROLOL [Concomitant]
     Active Substance: METOPROLOL

REACTIONS (6)
  - Pain in extremity [Recovering/Resolving]
  - Rheumatoid arthritis [Not Recovered/Not Resolved]
  - Joint swelling [Unknown]
  - Progressive multifocal leukoencephalopathy [Unknown]
  - Pain [Unknown]
  - Pyrexia [Unknown]

NARRATIVE: CASE EVENT DATE: 20150808
